FAERS Safety Report 4930593-7 (Version None)
Quarter: 2006Q1

REPORT INFORMATION
  Report Type: 
  Country: None (occurrence: None)
  Receive Date: 20060302
  Receipt Date: 20051019
  Transmission Date: 20060701
  Serious: Yes (Hospitalization)
  Sender: FDA-Public Use
  Company Number: US-MERCK-0510USA08341

PATIENT
  Age: 43 Year
  Sex: Female
  Weight: 92 kg

DRUGS (8)
  1. VIOXX [Suspect]
     Indication: ARTHRITIS
     Route: 048
     Dates: start: 19990101, end: 20041001
  2. TOPROL-XL [Concomitant]
     Route: 065
     Dates: start: 20020101
  3. ADVIL [Concomitant]
     Route: 065
     Dates: start: 19950101
  4. MOTRIN [Concomitant]
     Route: 065
     Dates: start: 19950101
  5. PREMARIN [Concomitant]
     Route: 065
     Dates: start: 20000101, end: 20020101
  6. PAXIL [Concomitant]
     Route: 065
     Dates: start: 20020101, end: 20030101
  7. XANAX [Concomitant]
     Route: 065
     Dates: start: 20030101
  8. VALIUM [Concomitant]
     Route: 065
     Dates: start: 20020101, end: 20030101

REACTIONS (12)
  - APPENDICITIS [None]
  - BLOOD CHOLESTEROL INCREASED [None]
  - CHEST PAIN [None]
  - DIABETES MELLITUS [None]
  - DYSPEPSIA [None]
  - GALLBLADDER DISORDER [None]
  - HEART RATE INCREASED [None]
  - HEPATOCELLULAR DAMAGE [None]
  - HYPERTENSION [None]
  - ROAD TRAFFIC ACCIDENT [None]
  - ULCER [None]
  - UTERINE DISORDER [None]
